FAERS Safety Report 10086820 (Version 8)
Quarter: 2015Q3

REPORT INFORMATION
  Report Type: Spontaneous
  Country: US (occurrence: US)
  Receive Date: 20140418
  Receipt Date: 20150814
  Transmission Date: 20151125
  Serious: Yes (Death, Hospitalization, Other)
  Sender: FDA-Public Use
  Company Number: US-GLAXOSMITHKLINE-A1069852A

PATIENT
  Age: 51 Year
  Sex: Female

DRUGS (7)
  1. FLOLAN [Suspect]
     Active Substance: EPOPROSTENOL SODIUM
     Dosage: 28 NG/KG/MIN, CO
     Dates: start: 20140515
  2. COUMADIN [Concomitant]
     Active Substance: WARFARIN SODIUM
  3. REVATIO [Concomitant]
     Active Substance: SILDENAFIL CITRATE
  4. LETAIRIS [Concomitant]
     Active Substance: AMBRISENTAN
  5. FLOLAN [Suspect]
     Active Substance: EPOPROSTENOL SODIUM
     Indication: COR PULMONALE CHRONIC
     Dosage: DOSE: 9 NG/KG/MINCONCENTRATION: 30,000 NG/MLVIAL STRENGTH: 1.5 MG
     Route: 042
     Dates: start: 20010119
  6. FLOLAN [Suspect]
     Active Substance: EPOPROSTENOL SODIUM
     Indication: PULMONARY HYPERTENSION
     Dosage: 20 NG/KG/MIN
  7. FLOLAN [Suspect]
     Active Substance: EPOPROSTENOL SODIUM
     Dosage: UNK

REACTIONS (10)
  - Renal impairment [Unknown]
  - Renal disorder [Unknown]
  - Fluid retention [Unknown]
  - Emergency care examination [Unknown]
  - Death [Fatal]
  - Pulmonary arterial hypertension [Unknown]
  - Neoplasm malignant [Unknown]
  - Renal failure [Unknown]
  - Infection [Unknown]
  - Fluid overload [Unknown]

NARRATIVE: CASE EVENT DATE: 20140317
